FAERS Safety Report 9562988 (Version 2)
Quarter: 2013Q3

REPORT INFORMATION
  Report Type: Spontaneous
  Country: JP (occurrence: JP)
  Receive Date: 20130927
  Receipt Date: 20130927
  Transmission Date: 20140515
  Serious: Yes (Hospitalization, Other)
  Sender: FDA-Public Use
  Company Number: JP-ABBVIE-01P-087-0110654-00

PATIENT
  Age: 36 Year
  Sex: Male

DRUGS (15)
  1. NORVIR SOFT GELATIN CAPSULES [Suspect]
     Indication: HIV INFECTION
     Route: 048
     Dates: start: 20000316, end: 20010409
  2. NORVIR SOFT GELATIN CAPSULES [Suspect]
     Route: 048
     Dates: start: 20000306, end: 20000315
  3. KALETRA SOFT GELATIN CAPSULES [Suspect]
     Indication: HIV INFECTION
     Route: 048
     Dates: start: 20010703, end: 20020831
  4. LAMIVUDINE [Suspect]
     Indication: HIV INFECTION
     Route: 048
     Dates: start: 20000303, end: 20010409
  5. STAVUDINE [Suspect]
     Indication: HIV INFECTION
     Route: 048
     Dates: start: 20000303, end: 20010409
  6. SAQUINAVIR [Suspect]
     Indication: HIV INFECTION
     Route: 048
     Dates: start: 20000303, end: 20010409
  7. EFAVIRENZ [Suspect]
     Indication: HIV INFECTION
     Route: 048
     Dates: start: 20010703, end: 20020831
  8. SULFAMETHOXAZOLE W/TRIMETHOPRIM [Concomitant]
     Indication: ANTIFUNGAL PROPHYLAXIS
     Route: 048
     Dates: start: 20000117, end: 20000716
  9. SULFAMETHOXAZOLE W/TRIMETHOPRIM [Concomitant]
     Route: 048
     Dates: start: 20000717, end: 20010409
  10. SULFAMETHOXAZOLE W/TRIMETHOPRIM [Concomitant]
     Route: 048
     Dates: start: 20010519, end: 20010524
  11. SULFAMETHOXAZOLE W/TRIMETHOPRIM [Concomitant]
     Route: 048
     Dates: start: 20010813, end: 20020831
  12. CLARITHROMYCIN [Concomitant]
     Indication: SINUSITIS
     Route: 048
     Dates: start: 20001002, end: 20010409
  13. PYRIDOXAL PHOSPHATE [Concomitant]
     Indication: LACTIC ACIDOSIS
     Route: 048
     Dates: start: 20010420, end: 20020831
  14. PENTAMIDINE ISETHIONATE [Concomitant]
     Indication: ANTIFUNGAL PROPHYLAXIS
     Route: 055
     Dates: start: 20010525, end: 20010812
  15. RIBOFLAVIN BUTYLATE [Concomitant]
     Route: 048
     Dates: start: 20010517, end: 20020831

REACTIONS (10)
  - Lactic acidosis [Recovering/Resolving]
  - Hypoaesthesia [Recovering/Resolving]
  - Diarrhoea [Recovering/Resolving]
  - Aspartate aminotransferase increased [Recovering/Resolving]
  - Alanine aminotransferase increased [Recovering/Resolving]
  - Blood triglycerides increased [Not Recovered/Not Resolved]
  - Hepatic function abnormal [Not Recovered/Not Resolved]
  - Decreased appetite [Unknown]
  - Nausea [Unknown]
  - Vomiting [Unknown]
